FAERS Safety Report 4265662-0 (Version None)
Quarter: 2004Q1

REPORT INFORMATION
  Report Type: 
  Country: None (occurrence: None)
  Receive Date: 20040107
  Receipt Date: 20031229
  Transmission Date: 20041129
  Serious: Yes (Death)
  Sender: FDA-Public Use
  Company Number: US-GLAXOSMITHKLINE-A0490830A

PATIENT
  Age: 50 Year
  Sex: Male

DRUGS (4)
  1. TOPOTECAN [Suspect]
     Indication: NON-SMALL CELL LUNG CANCER
     Dosage: 2MGM2 WEEKLY
     Route: 042
     Dates: start: 20031205, end: 20031212
  2. VINORELBINE TARTRATE [Suspect]
     Indication: NON-SMALL CELL LUNG CANCER
     Dosage: 25MGM2 WEEKLY
     Route: 042
     Dates: start: 20031205, end: 20031212
  3. LOVENOX [Concomitant]
     Indication: THROMBOSIS
     Dates: start: 20031223, end: 20031225
  4. LEVAQUIN [Concomitant]
     Indication: PYREXIA
     Route: 065
     Dates: start: 20031215

REACTIONS (6)
  - CARDIAC ARREST [None]
  - CHEST PAIN [None]
  - CIRCULATORY COLLAPSE [None]
  - MUSCLE CRAMP [None]
  - PHLEBOTHROMBOSIS [None]
  - PULMONARY EMBOLISM [None]
